FAERS Safety Report 6466296-X (Version None)
Quarter: 2009Q4

REPORT INFORMATION
  Report Type: 
  Country: None (occurrence: None)
  Receive Date: 20091202
  Receipt Date: 20091120
  Transmission Date: 20100525
  Serious: Yes (Congenital Anomaly)
  Sender: FDA-Public Use
  Company Number: GB-ROCHE-658530

PATIENT
  Sex: Male
  Weight: 2.7 kg

DRUGS (7)
  1. INVIRASE [Suspect]
     Indication: HIV INFECTION
     Route: 064
     Dates: start: 20060411
  2. COMBIVIR [Suspect]
     Indication: HIV INFECTION
     Dosage: DOSE REPORTED 2DF
     Route: 064
     Dates: start: 20060411
  3. NORVIR [Suspect]
     Indication: HIV INFECTION
     Route: 064
     Dates: start: 20060411
  4. VIRAMUNE [Suspect]
     Indication: HIV INFECTION
     Route: 064
     Dates: end: 20051225
  5. VIRAMUNE [Suspect]
     Route: 064
  6. KIVEXA [Suspect]
     Indication: ANTIVIRAL TREATMENT
     Route: 064
     Dates: end: 20051225
  7. KIVEXA [Suspect]
     Route: 064

REACTIONS (2)
  - ALPHA 1 FOETOPROTEIN INCREASED [None]
  - NORMAL NEWBORN [None]
